FAERS Safety Report 7610756-2 (Version None)
Quarter: 2011Q3

REPORT INFORMATION
  Report Type: 
  Country: None (occurrence: None)
  Receive Date: 20110715
  Receipt Date: 20110707
  Transmission Date: 20111222
  Serious: Yes (Other)
  Sender: FDA-Public Use
  Company Number: FR-ELI_LILLY_AND_COMPANY-FR201107002571

PATIENT
  Age: 69 Year
  Sex: Male

DRUGS (5)
  1. CIPROFLOXACIN [Concomitant]
  2. SOLUPRED [Concomitant]
  3. BYETTA [Suspect]
     Indication: INSULIN-REQUIRING TYPE 2 DIABETES MELLITUS
     Dosage: 10 UG, BID
     Route: 058
     Dates: start: 20100701, end: 20110701
  4. ACETAMINOPHEN AND TRAMADOL HCL [Concomitant]
  5. LEVEMIR [Concomitant]
     Indication: INSULIN-REQUIRING TYPE 2 DIABETES MELLITUS
     Route: 058

REACTIONS (3)
  - ABDOMINAL DISCOMFORT [None]
  - OFF LABEL USE [None]
  - PANCREATITIS [None]
